FAERS Safety Report 9373079 (Version 2)
Quarter: 2013Q3

REPORT INFORMATION
  Report Type: Spontaneous
  Country: US (occurrence: US)
  Receive Date: 20130627
  Receipt Date: 20130801
  Transmission Date: 20140515
  Serious: No
  Sender: FDA-Public Use
  Company Number: US-BAYER-2013-078151

PATIENT
  Age: 26 Year
  Sex: Female

DRUGS (1)
  1. FINACEA [Suspect]
     Indication: ACNE
     Dosage: UNK UNK, BID
     Route: 061

REACTIONS (2)
  - Acne [Not Recovered/Not Resolved]
  - Drug ineffective [None]
